FAERS Safety Report 9450396 (Version 1)
Quarter: 2013Q3

REPORT INFORMATION
  Report Type: Report from Study
  Country: US (occurrence: US)
  Receive Date: 20130809
  Receipt Date: 20130809
  Transmission Date: 20140515
  Serious: No
  Sender: FDA-Public Use
  Company Number: US-JNJFOC-20130800078

PATIENT
  Sex: Female
  Weight: 93.44 kg

DRUGS (1)
  1. USTEKINUMAB [Suspect]
     Indication: PSORIASIS
     Route: 065
     Dates: start: 201108, end: 201206

REACTIONS (1)
  - Hepatitis [Unknown]
